FAERS Safety Report 19608122 (Version 2)
Quarter: 2021Q3

REPORT INFORMATION
  Report Type: Spontaneous
  Country: TR (occurrence: TR)
  Receive Date: 20210726
  Receipt Date: 20210731
  Transmission Date: 20211014
  Serious: Yes (Other)
  Sender: FDA-Public Use
  Company Number: TR-JNJFOC-20210737939

PATIENT
  Age: 39 Year
  Sex: Female

DRUGS (8)
  1. TREVICTA [Suspect]
     Active Substance: PALIPERIDONE PALMITATE
  2. RISPERDAL CONSTA [Suspect]
     Active Substance: RISPERIDONE
  3. RISPERDAL CONSTA [Suspect]
     Active Substance: RISPERIDONE
     Indication: DEPRESSION
     Route: 030
     Dates: start: 2019, end: 2019
  4. RISPERDAL CONSTA [Suspect]
     Active Substance: RISPERIDONE
  5. TREVICTA [Suspect]
     Active Substance: PALIPERIDONE PALMITATE
     Indication: BIPOLAR I DISORDER
     Route: 030
     Dates: start: 2019, end: 202012
  6. TREVICTA [Suspect]
     Active Substance: PALIPERIDONE PALMITATE
  7. CEDRINA [Concomitant]
  8. RISPERDAL CONSTA [Suspect]
     Active Substance: RISPERIDONE

REACTIONS (6)
  - Pain in extremity [Not Recovered/Not Resolved]
  - Muscle spasms [Not Recovered/Not Resolved]
  - Off label use [Unknown]
  - Amenorrhoea [Not Recovered/Not Resolved]
  - Bone pain [Not Recovered/Not Resolved]
  - Product prescribing error [Unknown]

NARRATIVE: CASE EVENT DATE: 2019
